FAERS Safety Report 9517237 (Version 2)
Quarter: 2013Q3

REPORT INFORMATION
  Report Type: Spontaneous
  Country: US (occurrence: US)
  Receive Date: 20130911
  Receipt Date: 20130918
  Transmission Date: 20140515
  Serious: No
  Sender: FDA-Public Use
  Company Number: US-ASTRAZENECA-2013SE62236

PATIENT
  Age: 79 Year
  Sex: Female
  Weight: 53.5 kg

DRUGS (6)
  1. SYMBICORT [Suspect]
     Indication: CHRONIC OBSTRUCTIVE PULMONARY DISEASE
     Dosage: 160/4.5, MCG TWO PUFFS DAILY
     Route: 055
     Dates: start: 2011
  2. SYMBICORT [Suspect]
     Indication: CHRONIC OBSTRUCTIVE PULMONARY DISEASE
     Dosage: 160/4.5, MCG TWO PUFFS DAILY
     Route: 055
     Dates: start: 20130505
  3. ALBUTEROL [Concomitant]
     Dosage: DAILY
     Route: 055
  4. OXYGEN [Concomitant]
     Indication: MULTIPLE ALLERGIES
     Dosage: PRN
     Route: 055
  5. VITAMIN A [Concomitant]
     Dosage: DAILY
     Route: 048
  6. VITAMIN B [Concomitant]
     Dosage: DAILY
     Route: 048

REACTIONS (6)
  - Dyspnoea [Not Recovered/Not Resolved]
  - Fatigue [Not Recovered/Not Resolved]
  - Acne [Recovered/Resolved]
  - Muscle spasms [Recovered/Resolved]
  - Restlessness [Recovered/Resolved]
  - Off label use [Unknown]
